FAERS Safety Report 19029300 (Version 1)
Quarter: 2021Q1

REPORT INFORMATION
  Report Type: Spontaneous
  Country: BE (occurrence: BE)
  Receive Date: 20210318
  Receipt Date: 20210318
  Transmission Date: 20210420
  Serious: Yes (Life-Threatening)
  Sender: FDA-Public Use
  Company Number: BE-BAYER-2021-102571

PATIENT
  Age: 46 Year
  Sex: Male

DRUGS (6)
  1. KEPPRA [Concomitant]
     Active Substance: LEVETIRACETAM
     Dosage: 3 DF, QD
  2. RIVOTRIL [Concomitant]
     Active Substance: CLONAZEPAM
     Dosage: 1 DF, QD
  3. AVELOX [Suspect]
     Active Substance: MOXIFLOXACIN HYDROCHLORIDE
     Indication: PNEUMONIA
     Dosage: 400 MG, QD
     Route: 048
     Dates: start: 20210114, end: 20210117
  4. DEPAKINE CHRONO [Concomitant]
     Active Substance: VALPROATE SODIUM
     Dosage: 5 DF, QD
  5. PERINDOPRIL [Concomitant]
     Active Substance: PERINDOPRIL
     Dosage: 1 DF, QD
  6. LYRICA [Concomitant]
     Active Substance: PREGABALIN
     Dosage: 1 DF, QD

REACTIONS (9)
  - Asthenia [Recovering/Resolving]
  - Renal infarct [Recovering/Resolving]
  - Peripheral coldness [Recovering/Resolving]
  - Renal ischaemia [Recovering/Resolving]
  - Hypoaesthesia [Recovering/Resolving]
  - Diarrhoea [Recovering/Resolving]
  - Aortic dissection [Recovering/Resolving]
  - Abdominal pain [Recovering/Resolving]
  - Intestinal ischaemia [Recovering/Resolving]

NARRATIVE: CASE EVENT DATE: 20210117
